FAERS Safety Report 8151625-1 (Version None)
Quarter: 2012Q1

REPORT INFORMATION
  Report Type: 
  Country: None (occurrence: None)
  Receive Date: 20120220
  Receipt Date: 20120214
  Transmission Date: 20120608
  Serious: Yes (Hospitalization)
  Sender: FDA-Public Use
  Company Number: AT-ABBOTT-11P-009-0713664-00

PATIENT
  Age: 29 Year
  Sex: Male
  Weight: 39.9 kg

DRUGS (32)
  1. ZEMPLAR [Suspect]
     Indication: HYPERPARATHYROIDISM SECONDARY
     Dates: start: 20090526, end: 20090709
  2. ZEMPLAR [Suspect]
     Dates: start: 20110927
  3. RENAGEL [Concomitant]
     Indication: PRODUCT USED FOR UNKNOWN INDICATION
     Route: 048
     Dates: start: 20090810, end: 20101221
  4. EXFORGE HCT [Concomitant]
     Indication: PRODUCT USED FOR UNKNOWN INDICATION
     Dosage: 10/160/12.5 ONCE A DAY
     Route: 048
     Dates: start: 20100811
  5. ZEMPLAR [Suspect]
     Dates: start: 20090709, end: 20090806
  6. ARANESP [Concomitant]
     Indication: PRODUCT USED FOR UNKNOWN INDICATION
     Dosage: PER WEEK
     Route: 042
     Dates: start: 20091201
  7. AGAFFIN [Concomitant]
     Indication: PRODUCT USED FOR UNKNOWN INDICATION
     Dosage: 2 X 1 TABLESPOON
     Route: 048
     Dates: start: 20100111, end: 20100208
  8. ZEMPLAR [Suspect]
     Dates: start: 20091020, end: 20100126
  9. PANTOPRAZOLE SODIUM [Concomitant]
     Indication: PRODUCT USED FOR UNKNOWN INDICATION
     Route: 048
     Dates: start: 20100807
  10. ITERIUM [Concomitant]
     Indication: PRODUCT USED FOR UNKNOWN INDICATION
     Route: 048
     Dates: start: 20100813, end: 20100909
  11. CINACALCET HYDROCHLORIDE [Concomitant]
     Indication: PRODUCT USED FOR UNKNOWN INDICATION
     Route: 048
     Dates: start: 20110316
  12. ZEMPLAR [Suspect]
     Dates: start: 20110113, end: 20110516
  13. NEBIVOLOL [Concomitant]
     Indication: PRODUCT USED FOR UNKNOWN INDICATION
     Route: 048
     Dates: start: 20100813
  14. MEXALEN [Concomitant]
     Indication: PRODUCT USED FOR UNKNOWN INDICATION
  15. ZEMPLAR [Suspect]
     Dates: start: 20110714, end: 20110927
  16. THOMAPYRIN [Concomitant]
     Indication: PRODUCT USED FOR UNKNOWN INDICATION
     Route: 048
     Dates: start: 20080306
  17. BAYPRESS [Concomitant]
     Indication: PRODUCT USED FOR UNKNOWN INDICATION
     Route: 048
     Dates: start: 20100903, end: 20100904
  18. ETALPHA [Concomitant]
     Indication: PRODUCT USED FOR UNKNOWN INDICATION
     Route: 048
     Dates: start: 20101111
  19. AMITRIPTYLINE HCL [Concomitant]
     Indication: PRODUCT USED FOR UNKNOWN INDICATION
     Route: 048
     Dates: start: 20100909
  20. LAEVOLAC [Concomitant]
     Indication: PRODUCT USED FOR UNKNOWN INDICATION
  21. ANTIPHOS [Concomitant]
     Indication: PRODUCT USED FOR UNKNOWN INDICATION
     Route: 048
     Dates: start: 20080506, end: 20090810
  22. NEORECORMON [Concomitant]
     Indication: PRODUCT USED FOR UNKNOWN INDICATION
     Route: 042
     Dates: start: 20070605, end: 20091117
  23. CARVEDILOL [Concomitant]
     Indication: PRODUCT USED FOR UNKNOWN INDICATION
     Route: 048
     Dates: start: 20100811, end: 20100904
  24. FERRLECIT [Concomitant]
     Indication: PRODUCT USED FOR UNKNOWN INDICATION
     Dosage: PER WEEK
     Route: 042
     Dates: start: 20070807, end: 20101021
  25. DESLORATADINE [Concomitant]
     Indication: PRODUCT USED FOR UNKNOWN INDICATION
     Route: 048
     Dates: start: 20091020, end: 20100603
  26. FERMED [Concomitant]
     Indication: PRODUCT USED FOR UNKNOWN INDICATION
     Dosage: PER WEEK
     Route: 042
     Dates: start: 20110111
  27. NOVALGIN [Concomitant]
     Indication: PRODUCT USED FOR UNKNOWN INDICATION
  28. ZEMPLAR [Suspect]
     Dates: start: 20090806, end: 20091020
  29. ZEMPLAR [Suspect]
     Dates: start: 20100126, end: 20100811
  30. ZEMPLAR [Suspect]
     Dates: start: 20110517, end: 20110712
  31. LERCANIDIPINE [Concomitant]
     Indication: PRODUCT USED FOR UNKNOWN INDICATION
     Route: 048
     Dates: start: 20100703, end: 20100811
  32. RENVELA [Concomitant]
     Indication: PRODUCT USED FOR UNKNOWN INDICATION
     Dosage: 2-800MG THREE TIMES A DAY
     Route: 048
     Dates: start: 20101221

REACTIONS (4)
  - LEUKOPENIA [None]
  - INFECTION [None]
  - PERICARDITIS [None]
  - PERICARDIAL EFFUSION [None]
